FAERS Safety Report 10072490 (Version 1)
Quarter: 2014Q1

REPORT INFORMATION
  Report Type: Spontaneous
  Country: US (occurrence: None)
  Receive Date: 20140311
  Receipt Date: 20140311
  Transmission Date: 20141002
  Serious: Yes (Other)
  Sender: FDA-Public Use
  Company Number: 103318

PATIENT
  Age: 24 Year
  Sex: Female
  Weight: 47.63 kg

DRUGS (2)
  1. NAPHAZOLINE HYDROCHLORIDE\POLYSORBATE 80 [Suspect]
     Indication: OCULAR HYPERAEMIA
     Dosage: INTERMITTENT OPTHALMIC ON AND OFF FOR A YEAR
  2. NAPHAZOLINE HYDROCHLORIDE\POLYSORBATE 80 [Suspect]
     Indication: EYE IRRITATION
     Dosage: INTERMITTENT OPTHALMIC ON AND OFF FOR A YEAR

REACTIONS (1)
  - Corneal disorder [None]
